FAERS Safety Report 6735259-9 (Version None)
Quarter: 2010Q2

REPORT INFORMATION
  Report Type: 
  Country: None (occurrence: None)
  Receive Date: 20100521
  Receipt Date: 20100512
  Transmission Date: 20101027
  Serious: Yes (Hospitalization, Other)
  Sender: FDA-Public Use
  Company Number: DE-ASTRAZENECA-2010SE21583

PATIENT
  Sex: Female

DRUGS (4)
  1. ATACAND [Suspect]
     Route: 048
     Dates: start: 20040101
  2. LEVOTHYROXINE SODIUM [Concomitant]
     Route: 065
  3. VERAMEX [Concomitant]
     Route: 065
  4. NOVODIGAL [Concomitant]
     Route: 065
     Dates: start: 20000101

REACTIONS (9)
  - ARTHRALGIA [None]
  - ASTHENIA [None]
  - COMA [None]
  - DIZZINESS [None]
  - DYSPNOEA [None]
  - HEPATIC FAILURE [None]
  - LUNG INFECTION [None]
  - MYOCARDIAL INFARCTION [None]
  - PYREXIA [None]
